FAERS Safety Report 18005855 (Version 2)
Quarter: 2020Q3

REPORT INFORMATION
  Report Type: Spontaneous
  Country: CH (occurrence: CH)
  Receive Date: 20200710
  Receipt Date: 20200714
  Transmission Date: 20201103
  Serious: Yes (Life-Threatening, Other)
  Sender: FDA-Public Use
  Company Number: NVSC2020CH192617

PATIENT
  Sex: Female

DRUGS (2)
  1. RITALIN SR [Suspect]
     Active Substance: METHYLPHENIDATE HYDROCHLORIDE
     Indication: ATTENTION DEFICIT HYPERACTIVITY DISORDER
     Dosage: 40 MG
     Route: 065
     Dates: start: 2007
  2. RITALIN SR [Suspect]
     Active Substance: METHYLPHENIDATE HYDROCHLORIDE
     Indication: AUTISM SPECTRUM DISORDER

REACTIONS (10)
  - Syncope [Not Recovered/Not Resolved]
  - Product use in unapproved indication [Unknown]
  - Arrhythmia [Unknown]
  - Electrocardiogram QT prolonged [Recovering/Resolving]
  - Rebound effect [Unknown]
  - Dissociative disorder [Recovering/Resolving]
  - Stress cardiomyopathy [Not Recovered/Not Resolved]
  - Withdrawal syndrome [Unknown]
  - Ventricular fibrillation [Not Recovered/Not Resolved]
  - Haematoma [Not Recovered/Not Resolved]
